FAERS Safety Report 18957671 (Version 1)
Quarter: 2021Q1

REPORT INFORMATION
  Report Type: Spontaneous
  Country: US (occurrence: US)
  Receive Date: 20210301
  Receipt Date: 20210301
  Transmission Date: 20210420
  Serious: Yes (Other)
  Sender: FDA-Public Use
  Company Number: None

PATIENT
  Age: 51 Year
  Sex: Female

DRUGS (1)
  1. OMEPRAZOLE DR 40MG ZYDUS PHARMACEUTICALS (US [Suspect]
     Active Substance: OMEPRAZOLE
     Indication: HIV INFECTION
     Route: 048

REACTIONS (2)
  - Ear pain [None]
  - Oropharyngeal pain [None]

NARRATIVE: CASE EVENT DATE: 202012
